FAERS Safety Report 6652723-1 (Version None)
Quarter: 2010Q1

REPORT INFORMATION
  Report Type: 
  Country: None (occurrence: None)
  Receive Date: 20100326
  Receipt Date: 20100316
  Transmission Date: 20100710
  Serious: Yes (Other)
  Sender: FDA-Public Use
  Company Number: US-JNJFOC-20100306169

PATIENT
  Age: 79 Year
  Sex: Male
  Weight: 92.53 kg

DRUGS (4)
  1. TYLENOL [Suspect]
     Route: 048
  2. TYLENOL [Suspect]
     Indication: ARTHRITIS
     Dosage: 1300 MG 3 TIMES A DAY (AS NECESSARY)
     Route: 048
  3. NORVASC [Concomitant]
     Indication: HYPERTENSION
  4. UNKNOWN MEDICATION [Concomitant]
     Indication: NEOPLASM MALIGNANT

REACTIONS (6)
  - ABDOMINAL PAIN UPPER [None]
  - DEHYDRATION [None]
  - LOSS OF CONSCIOUSNESS [None]
  - NAUSEA [None]
  - PRODUCT ODOUR ABNORMAL [None]
  - VOMITING [None]
